FAERS Safety Report 6265299-8 (Version None)
Quarter: 2009Q3

REPORT INFORMATION
  Report Type: 
  Country: None (occurrence: None)
  Receive Date: 20090709
  Receipt Date: 20090709
  Transmission Date: 20100115
  Serious: Yes (Other)
  Sender: FDA-Public Use
  Company Number: None

PATIENT
  Sex: Female

DRUGS (1)
  1. AZO STANDARD MAXIMUM STRENGTH [Suspect]
     Indication: URINARY TRACT INFECTION
     Dosage: 2 TABLETS/3XDAY

REACTIONS (1)
  - CHEST PAIN [None]
